FAERS Safety Report 8348460-8 (Version None)
Quarter: 2012Q2

REPORT INFORMATION
  Report Type: 
  Country: None (occurrence: None)
  Receive Date: 20120509
  Receipt Date: 20120504
  Transmission Date: 20120825
  Serious: Yes (Hospitalization, Other)
  Sender: FDA-Public Use
  Company Number: US-ABBOTT-12P-163-0918425-00

PATIENT
  Age: 35 Year
  Sex: Female

DRUGS (14)
  1. PHENERGAN [Suspect]
     Indication: MIGRAINE
  2. ACETAMINOPHEN [Suspect]
     Indication: MIGRAINE
  3. TRIAMCINOLONE [Concomitant]
     Indication: PSORIASIS
     Route: 061
  4. VISTARIL [Concomitant]
     Indication: CYSTITIS INTERSTITIAL
     Dosage: 1 PILL EVERY ONCE IN A WHILE
  5. BENADRYL [Suspect]
     Indication: MIGRAINE
  6. ALLERGY SHOTS [Concomitant]
     Indication: PRODUCT USED FOR UNKNOWN INDICATION
     Dosage: WEEKLY
  7. HUMIRA [Suspect]
  8. IMITREX [Suspect]
     Indication: MIGRAINE
     Dates: start: 20120319
  9. HUMIRA [Suspect]
     Indication: PSORIASIS
     Dates: start: 20120215
  10. KLONOPIN [Concomitant]
     Indication: ANXIETY
  11. TORADOL [Suspect]
     Indication: MIGRAINE
  12. ACETONIDE [Concomitant]
     Indication: PSORIASIS
     Route: 061
  13. HALOG [Concomitant]
     Indication: PSORIASIS
     Dosage: 2-3 TIMES DAILY
     Route: 061
  14. PROTONIX [Concomitant]
     Indication: GASTROOESOPHAGEAL REFLUX DISEASE

REACTIONS (5)
  - HYPERSENSITIVITY [None]
  - BLOOD PRESSURE INCREASED [None]
  - INJECTION SITE PAIN [None]
  - MIGRAINE [None]
  - MUSCLE SPASMS [None]
